FAERS Safety Report 14800396 (Version 1)
Quarter: 2018Q2

REPORT INFORMATION
  Report Type: Spontaneous
  Country: DE (occurrence: DE)
  Receive Date: 20180424
  Receipt Date: 20180424
  Transmission Date: 20180711
  Serious: Yes (Disabling)
  Sender: FDA-Public Use
  Company Number: DE-SA-2018SA106705

PATIENT
  Sex: Male

DRUGS (1)
  1. KARVEA [Suspect]
     Active Substance: IRBESARTAN
     Dosage: 150 MG + 75 MG DAILY
     Route: 048
     Dates: end: 2018

REACTIONS (2)
  - Hyperhidrosis [Recovered/Resolved]
  - Dizziness [Recovered/Resolved]

NARRATIVE: CASE EVENT DATE: 20180323
